FAERS Safety Report 5508314-9 (Version None)
Quarter: 2007Q4

REPORT INFORMATION
  Report Type: 
  Country: None (occurrence: None)
  Receive Date: 20071106
  Receipt Date: 20071012
  Transmission Date: 20080405
  Serious: No
  Sender: FDA-Public Use
  Company Number: US-BOEHRINGER INGELHEIM PHARMACEUTICALS, INC.-2007-BP-22669BP

PATIENT
  Age: 57 Year
  Sex: Male

DRUGS (3)
  1. CATAPRES-TTS-1 [Suspect]
     Indication: HYPERTENSION
     Route: 061
     Dates: start: 20070801, end: 20070901
  2. LOTREL [Concomitant]
  3. DIOVAN HCT [Concomitant]

REACTIONS (1)
  - APPLICATION SITE BURN [None]
